FAERS Safety Report 10688273 (Version 1)
Quarter: 2014Q4

REPORT INFORMATION
  Report Type: Spontaneous
  Country: US (occurrence: None)
  Receive Date: 20141231
  Receipt Date: 20141231
  Transmission Date: 20150529
  Serious: No
  Sender: FDA-Public Use
  Company Number: 2014-00115

PATIENT
  Age: 38 Year
  Sex: Male

DRUGS (2)
  1. ZICAM COLD REMEDY [Suspect]
     Active Substance: ZINC ACETATE\ZINC GLUCONATE
     Indication: NASOPHARYNGITIS
     Dosage: 2X, ORALLY, 1 TIME
     Route: 048
     Dates: start: 20141222
  2. ZICAM COLD REMEDY [Suspect]
     Active Substance: ZINC ACETATE\ZINC GLUCONATE
     Indication: INFLUENZA
     Dosage: 2X, ORALLY, 1 TIME
     Route: 048
     Dates: start: 20141222

REACTIONS (2)
  - Anosmia [None]
  - Ageusia [None]

NARRATIVE: CASE EVENT DATE: 20141223
